FAERS Safety Report 4527247-8 (Version None)
Quarter: 2004Q4

REPORT INFORMATION
  Report Type: 
  Country: None (occurrence: None)
  Receive Date: 20041214
  Receipt Date: 20041214
  Transmission Date: 20050328
  Serious: Yes (Other)
  Sender: FDA-Public Use
  Company Number: None

PATIENT
  Sex: Female
  Weight: 82.1011 kg

DRUGS (2)
  1. WARFARIN [Suspect]
     Indication: DEEP VEIN THROMBOSIS
     Dosage: VARYING DOSE DAILY BY MOUTH
     Route: 048
     Dates: start: 20040816
  2. WARFARIN [Suspect]
     Indication: PULMONARY EMBOLISM
     Dosage: VARYING DOSE DAILY BY MOUTH
     Route: 048
     Dates: start: 20040816

REACTIONS (3)
  - DRUG EFFECT DECREASED [None]
  - DRUG LEVEL FLUCTUATING [None]
  - PHARMACEUTICAL PRODUCT COMPLAINT [None]
